FAERS Safety Report 5403529-2 (Version None)
Quarter: 2007Q3

REPORT INFORMATION
  Report Type: 
  Country: None (occurrence: None)
  Receive Date: 20070730
  Receipt Date: 20070713
  Transmission Date: 20080115
  Serious: Yes (Death, Hospitalization)
  Sender: FDA-Public Use
  Company Number: DSA_30181_2007

PATIENT
  Sex: Male

DRUGS (12)
  1. TEMESTA (TEMESTA) 2.5 MG (NOT SPECIFIED) [Suspect]
     Dosage: 2.5 MG TID, ORAL
     Route: 048
     Dates: end: 20070506
  2. DORMICUM /00036201/ (DORMICUM) 15 MG [Suspect]
     Dosage: 15 MG BID; ORAL
     Route: 048
     Dates: end: 20070506
  3. STILNOX /00914901/ (STILNOX) 10MG [Suspect]
     Dosage: 10 MG QD; ORAL
     Route: 048
     Dates: end: 20070506
  4. TRANXILIUM (TRANXILIUM) 20 MG (NOT SPECIFIED) [Suspect]
     Dosage: 20MG QD; ORAL
     Route: 048
     Dates: end: 20070506
  5. SORTIS /01326102/ (SORTIS) (NOT SPECIFIED) [Suspect]
     Dosage: 20 MG QD; ORAL
     Route: 048
     Dates: end: 20070506
  6. ACETAMINOPHEN [Concomitant]
  7. NORVASC [Concomitant]
  8. BELOC /00376902/ [Concomitant]
  9. TOREM /01036501/ [Concomitant]
  10. PLAVIX [Concomitant]
  11. ELTROXIN [Concomitant]
  12. AMISULPRIDE [Concomitant]

REACTIONS (11)
  - ALANINE AMINOTRANSFERASE INCREASED [None]
  - ALTERED STATE OF CONSCIOUSNESS [None]
  - ASPARTATE AMINOTRANSFERASE INCREASED [None]
  - CYANOSIS [None]
  - DIABETIC KETOACIDOSIS [None]
  - HYPERGLYCAEMIA [None]
  - PNEUMONIA [None]
  - RENAL FAILURE ACUTE [None]
  - RESPIRATORY DEPRESSION [None]
  - RESPIRATORY RATE INCREASED [None]
  - RHABDOMYOLYSIS [None]
